FAERS Safety Report 8357901-1 (Version None)
Quarter: 2012Q2

REPORT INFORMATION
  Report Type: 
  Country: None (occurrence: None)
  Receive Date: 20120514
  Receipt Date: 20120510
  Transmission Date: 20120825
  Serious: Yes (Life-Threatening, Hospitalization)
  Sender: FDA-Public Use
  Company Number: US-BAYER-2011-012387

PATIENT
  Age: 37 Year
  Sex: Male
  Weight: 82 kg

DRUGS (1)
  1. AVELOX [Suspect]
     Indication: SOFT TISSUE INFECTION
     Dosage: 400 MG, ONCE
     Route: 048
     Dates: start: 20101201, end: 20101201

REACTIONS (4)
  - ANAPHYLACTIC REACTION [None]
  - PRURITUS [None]
  - RESPIRATORY FAILURE [None]
  - CHEST DISCOMFORT [None]
